FAERS Safety Report 12120261 (Version 1)
Quarter: 2016Q1

REPORT INFORMATION
  Report Type: Spontaneous
  Country: GB (occurrence: GB)
  Receive Date: 20160226
  Receipt Date: 20160226
  Transmission Date: 20160526
  Serious: Yes (Other)
  Sender: FDA-Public Use
  Company Number: GB-BAUSCH-BL-2016-004355

PATIENT
  Age: 54 Year
  Sex: Male

DRUGS (2)
  1. VISUDYNE [Suspect]
     Active Substance: VERTEPORFIN
     Indication: HAEMANGIOBLASTOMA
     Dosage: 6 MG/M2
     Route: 042
  2. RANIBIZUMAB (NVO) (RANIBIZUMAB) [Suspect]
     Active Substance: RANIBIZUMAB
     Indication: HAEMANGIOBLASTOMA
     Route: 050

REACTIONS (5)
  - Visual acuity reduced [Unknown]
  - Neoplasm recurrence [Unknown]
  - Product use issue [Unknown]
  - Retinal exudates [Unknown]
  - Therapeutic response decreased [Unknown]
